FAERS Safety Report 13670455 (Version 2)
Quarter: 2017Q3

REPORT INFORMATION
  Report Type: Spontaneous
  Country: BR (occurrence: BR)
  Receive Date: 20170620
  Receipt Date: 20170914
  Transmission Date: 20171127
  Serious: Yes (Hospitalization)
  Sender: FDA-Public Use
  Company Number: BR-PFIZER INC-2017262807

PATIENT
  Age: 74 Year
  Sex: Male

DRUGS (11)
  1. MINUSORB [Concomitant]
     Dosage: UNK
     Dates: start: 201606
  2. LIPITOR [Concomitant]
     Active Substance: ATORVASTATIN CALCIUM
     Dosage: UNK
     Dates: start: 201503
  3. ASPIRINA PREVENT [Concomitant]
     Active Substance: ASPIRIN
     Dosage: UNK
     Dates: start: 201503
  4. PLAVIX [Concomitant]
     Active Substance: CLOPIDOGREL BISULFATE
     Dosage: UNK
     Dates: start: 201503
  5. ANCORON [Concomitant]
     Active Substance: AMIODARONE HYDROCHLORIDE
     Dosage: UNK
     Dates: start: 201503
  6. LACTASE [Concomitant]
     Active Substance: LACTASE
     Dosage: UNK
     Dates: start: 201609
  7. DOSTINEX [Suspect]
     Active Substance: CABERGOLINE
     Indication: PITUITARY TUMOUR
     Dosage: 1 TABLET PER WEEK
     Dates: start: 201606, end: 201612
  8. DOSTINEX [Suspect]
     Active Substance: CABERGOLINE
     Dosage: 0.25 MG, ALTERNATE WEEKS
     Dates: start: 201612, end: 201706
  9. DOSTINEX [Suspect]
     Active Substance: CABERGOLINE
     Dosage: HALF TABLET PER WEEK
     Dates: start: 201706
  10. ENALAPRIL MALEATE. [Concomitant]
     Active Substance: ENALAPRIL MALEATE
     Dosage: UNK
  11. ADDERA D3 [Concomitant]
     Active Substance: CHOLECALCIFEROL
     Dosage: UNK
     Dates: start: 201706

REACTIONS (2)
  - Irritability [Not Recovered/Not Resolved]
  - Balance disorder [Not Recovered/Not Resolved]
